FAERS Safety Report 21665171 (Version 4)
Quarter: 2023Q1

REPORT INFORMATION
  Report Type: Report from Study
  Country: PT (occurrence: PT)
  Receive Date: 20221130
  Receipt Date: 20230109
  Transmission Date: 20230418
  Serious: Yes (Other)
  Sender: FDA-Public Use
  Company Number: PT-ABBVIE-4205648

PATIENT
  Age: 75 Year
  Sex: Female

DRUGS (10)
  1. CARBIDOPA\LEVODOPA [Suspect]
     Active Substance: CARBIDOPA\LEVODOPA
     Indication: Parkinson^s disease
     Dosage: 20 MG + 5 MG. 17CC;MAINT:3.4CC/H;EXTRA:2.5CC
     Route: 050
     Dates: start: 20221212, end: 20221225
  2. CARBIDOPA\LEVODOPA [Suspect]
     Active Substance: CARBIDOPA\LEVODOPA
     Dosage: 20 MG + 5 MG MAINT:3.4CC/H;EXTRA:2.5CC
     Route: 050
     Dates: start: 20221226
  3. CARBIDOPA\LEVODOPA [Suspect]
     Active Substance: CARBIDOPA\LEVODOPA
     Dosage: 20 MG + 5 MG?FREQUENCY TEXT: MORN:12CC; MAIN T:3.8CC/H; EXTRA:1CC
     Route: 050
     Dates: start: 20221031, end: 202211
  4. CARBIDOPA\LEVODOPA [Suspect]
     Active Substance: CARBIDOPA\LEVODOPA
     Dosage: 20 MG + 5 MG?FIRST ADMIN DATE: NOV 2022
     Route: 050
     Dates: end: 20221212
  5. RIVOTRIL [Concomitant]
     Active Substance: CLONAZEPAM
     Indication: Product used for unknown indication
     Dosage: 1 TABLET
     Route: 048
  6. RIVOTRIL [Concomitant]
     Active Substance: CLONAZEPAM
     Indication: Product used for unknown indication
     Dosage: 1 TABLET AT BEDTIME?FORM STRENGTH: 0.5 MILLIGRAM ?STARTED BEFORE DUODOPA
     Route: 048
  7. TAPENTADOL [Concomitant]
     Active Substance: TAPENTADOL
     Indication: Product used for unknown indication
     Dosage: STRENGTH: 100 MILLIGRAMS?TOTAL DOSE: 200 MILLIGRAMS ?STARTED BEFORE DUODOPA
     Route: 048
  8. DONEPEZIL [Concomitant]
     Active Substance: DONEPEZIL
     Indication: Product used for unknown indication
     Dosage: 1 TABLET AT DINNER?10 MILLIGRAM ?STARTED BEFORE DUODOPA
     Route: 048
  9. AMANTADINE [Concomitant]
     Active Substance: AMANTADINE
     Indication: Product used for unknown indication
     Dosage: 1 TABLET AT LUNCH?100 MG?STARTED BEFORE DUODOPA
     Route: 048
  10. OMEPRAZOLE [Concomitant]
     Active Substance: OMEPRAZOLE
     Indication: Product used for unknown indication
     Dosage: 1 TABLET AT FASTING?FORM STRENGTH: 20 MILLIGRAM?STARTED BEFORE DUODOPA
     Route: 048

REACTIONS (4)
  - Flushing [Recovered/Resolved]
  - Staphylococcal infection [Recovered/Resolved]
  - Stoma site discharge [Recovered/Resolved with Sequelae]
  - Stoma site erythema [Recovered/Resolved]

NARRATIVE: CASE EVENT DATE: 20221116
